FAERS Safety Report 7555292-7 (Version None)
Quarter: 2011Q2

REPORT INFORMATION
  Report Type: 
  Country: None (occurrence: None)
  Receive Date: 20110617
  Receipt Date: 20110615
  Transmission Date: 20111010
  Serious: Yes (Death, Hospitalization)
  Sender: FDA-Public Use
  Company Number: PHFR2011IE02762

PATIENT
  Sex: Female

DRUGS (7)
  1. THIAMINE [Concomitant]
     Dosage: 300 MG/DAY
     Route: 048
  2. MODECATE [Concomitant]
     Dosage: 50 MG, BIW
     Route: 030
  3. OLANZAPINE [Concomitant]
     Dosage: 5 MG/DAY
     Route: 048
  4. LEVOTHYROXINE SODIUM [Concomitant]
     Dosage: 100 UG/DAY
     Route: 048
  5. CLOZAPINE [Suspect]
     Indication: SCHIZOPHRENIA
     Dates: start: 20020313, end: 20110120
  6. BIPERIDEN HYDROCHLORIDE TAB [Concomitant]
     Dosage: 4 MG, UNK
     Route: 048
  7. ESOMEPRAZOLE MAGNESIUM [Concomitant]
     Dosage: 200 MG/DAY
     Route: 048

REACTIONS (3)
  - SCHIZOPHRENIA [None]
  - COMPLETED SUICIDE [None]
  - WOUND [None]
